FAERS Safety Report 5176445-1 (Version None)
Quarter: 2006Q4

REPORT INFORMATION
  Report Type: 
  Country: None (occurrence: None)
  Receive Date: 20061215
  Receipt Date: 20061204
  Transmission Date: 20070319
  Serious: Yes (Other)
  Sender: FDA-Public Use
  Company Number: DE-BRISTOL-MYERS SQUIBB COMPANY-13602578

PATIENT

DRUGS (1)
  1. CARBIDOPA + LEVODOPA [Suspect]

REACTIONS (1)
  - FACIAL PALSY [None]
